FAERS Safety Report 5270414-9 (Version None)
Quarter: 2007Q1

REPORT INFORMATION
  Report Type: 
  Country: None (occurrence: None)
  Receive Date: 20070314
  Receipt Date: 20070302
  Transmission Date: 20070707
  Serious: Yes (Hospitalization)
  Sender: FDA-Public Use
  Company Number: 2007-00570

PATIENT
  Age: 52 Year
  Sex: Male

DRUGS (8)
  1. VELCADE [Suspect]
     Indication: T-CELL LYMPHOMA
     Dosage: 2.90 MG, INTRAVENOUS
     Route: 042
     Dates: start: 20070122, end: 20070223
  2. DOXORUBICIN HCL [Suspect]
     Indication: T-CELL LYMPHOMA
     Dosage: 144.00 MG, INTRAVENOUS
     Route: 042
     Dates: start: 20070122, end: 20070219
  3. CYCLOPHOSPHAMIDE [Suspect]
     Indication: T-CELL LYMPHOMA
     Dosage: 2300.00 MG, INTRAVENOUS
     Route: 042
     Dates: start: 20070122, end: 20070219
  4. ELDISINE [Suspect]
     Indication: T-CELL LYMPHOMA
     Dosage: 3.80 MG, INTRAVENOUS
     Route: 042
     Dates: start: 20070122, end: 20070223
  5. BLEOMYCIN [Suspect]
     Indication: T-CELL LYMPHOMA
     Dosage: 10.00 MG, INTRAVENOUS
     Route: 042
     Dates: start: 20070122, end: 20070223
  6. METHOTREXATE [Suspect]
     Indication: T-CELL LYMPHOMA
     Dosage: 15.00 MG, INTRAVENOUS
     Route: 042
     Dates: start: 20070122, end: 20070219
  7. SOLU-MEDROL [Suspect]
     Indication: T-CELL LYMPHOMA
     Dosage: 115.00 MG, INTRAVENOUS
     Route: 042
     Dates: start: 20070122, end: 20070223
  8. PREDNISONE [Suspect]
     Indication: T-CELL LYMPHOMA
     Dosage: 115.00 MG, INTRAVENOUS
     Route: 042
     Dates: start: 20070123, end: 20070222

REACTIONS (8)
  - CAECITIS [None]
  - DIARRHOEA [None]
  - DYSPNOEA [None]
  - FEBRILE BONE MARROW APLASIA [None]
  - ILEUS PARALYTIC [None]
  - NAUSEA [None]
  - TACHYCARDIA [None]
  - VOMITING [None]
